FAERS Safety Report 10919376 (Version 3)
Quarter: 2015Q2

REPORT INFORMATION
  Report Type: Spontaneous
  Country: KR (occurrence: KR)
  Receive Date: 20150316
  Receipt Date: 20150630
  Transmission Date: 20150821
  Serious: Yes (Hospitalization)
  Sender: FDA-Public Use
  Company Number: KR-OTSUKA-US-2015-11237

PATIENT
  Age: 81 Year
  Sex: Female
  Weight: 50 kg

DRUGS (51)
  1. HEXOMEDIN [Concomitant]
     Indication: DENTAL DISORDER PROPHYLAXIS
     Dosage: 100 ML MILLILITRE(S),1 IN
     Route: 048
     Dates: start: 20150301, end: 20150301
  2. PHENIRAMINE MALEATE [Concomitant]
     Active Substance: PHENIRAMINE MALEATE
     Dosage: 4 MG MILLIGRAM(S), 2 IN
     Route: 042
     Dates: start: 20150312, end: 20150312
  3. TRIDOL [Concomitant]
     Indication: PAIN MANAGEMENT
     Dosage: 50 MG MILLIGRAM(S), 1 IN
     Route: 042
     Dates: start: 20150301, end: 20150301
  4. TRIDOL [Concomitant]
     Dosage: 50 MG MILLIGRAM(S), 1 IN
     Route: 042
     Dates: start: 20150310, end: 20150311
  5. CRAVIT [Concomitant]
     Active Substance: LEVOFLOXACIN
     Indication: PNEUMONIA
     Dosage: 500 MG MILLIGRAM(S), 1 IN
     Route: 048
     Dates: start: 20150115, end: 20150225
  6. LASIX [Concomitant]
     Active Substance: FUROSEMIDE
     Dosage: 20 MG MILLIGRAM(S), 1 IN
     Route: 042
     Dates: start: 20150319, end: 20150319
  7. SINGULAIR [Concomitant]
     Active Substance: MONTELUKAST SODIUM
     Indication: ASTHMA
     Dosage: 10 MG MILLIGRAM(S), 1 IN
     Route: 048
     Dates: start: 20150313, end: 20150319
  8. SOLONDO [Concomitant]
     Active Substance: PREDNISOLONE
     Indication: ASTHMA
     Dosage: 30 MG MILLIGRAM(S), 1 IN
     Route: 048
     Dates: start: 20150311, end: 20150317
  9. TACENOL [Concomitant]
     Dosage: 650 MG MILLIGRAM(S), 2 IN
     Route: 048
     Dates: start: 20150306, end: 20150314
  10. HERBAL EXTRACT NOS [Concomitant]
     Active Substance: HERBALS
     Indication: PROPHYLAXIS AGAINST GASTROINTESTINAL ULCER
     Dosage: 30 MG MILLIGRAM(S), 3 IN
     Route: 048
     Dates: start: 20150308, end: 20150317
  11. DIAZEPAM. [Concomitant]
     Active Substance: DIAZEPAM
     Indication: VERTIGO
     Dosage: 2 MG MILLIGRAM(S),1 IN
     Route: 042
     Dates: start: 20150216, end: 20150216
  12. EXJADE [Concomitant]
     Active Substance: DEFERASIROX
     Indication: IRON OVERLOAD
     Dosage: 1000 MG MILLIGRAM(S), 1 IN
     Route: 048
     Dates: start: 20150301
  13. H2 BLOCKER [Concomitant]
     Indication: PROPHYLAXIS AGAINST GASTROINTESTINAL ULCER
     Dosage: 200 MG MILLIGRAM(S), 1 IN
     Route: 042
     Dates: start: 20150216, end: 20150216
  14. MAXIPIME [Concomitant]
     Active Substance: CEFEPIME HYDROCHLORIDE
     Dosage: 2 G GRAM(S),2 IN
     Route: 042
     Dates: start: 20150301, end: 20150316
  15. DEXAMETHASONE. [Concomitant]
     Active Substance: DEXAMETHASONE
     Indication: ASTHMA
     Dosage: 10 MG MILLIGRAM(S), 1 IN
     Route: 048
     Dates: start: 20150302, end: 20150304
  16. DISOLAN [Concomitant]
     Indication: ASTHMA
     Dosage: 40 MG MILLIGRAM(S), 1 IN
     Route: 042
     Dates: start: 20150306, end: 20150310
  17. DUPHALAC [Concomitant]
     Active Substance: LACTULOSE
     Indication: CONSTIPATION PROPHYLAXIS
     Dosage: 30 ML MILLILITRE(S), 3 IN
     Route: 048
     Dates: start: 20150308, end: 20150308
  18. SODIUM BICARBONATE. [Concomitant]
     Active Substance: SODIUM BICARBONATE
     Indication: ACIDOSIS
     Dosage: 30 ML MILLILITRE(S), 1 IN
     Route: 042
     Dates: start: 20150319, end: 20150319
  19. VENTOLIN [Concomitant]
     Active Substance: ALBUTEROL SULFATE
     Dosage: 2 ML MILLILITRE(S), 1 IN
     Route: 065
     Dates: start: 20150311, end: 20150314
  20. DIFLUCAN [Concomitant]
     Active Substance: FLUCONAZOLE
     Indication: ANTIFUNGAL PROPHYLAXIS
     Dosage: 5 ML MILLILITRE(S), 1 IN
     Route: 048
     Dates: start: 20150302, end: 20150302
  21. MEGACE [Concomitant]
     Active Substance: MEGESTROL ACETATE
     Indication: DECREASED APPETITE
     Dosage: 20 ML MILLILITRE(S), 1 IN
     Route: 048
     Dates: start: 20150305, end: 20150310
  22. DENOGAN [Concomitant]
     Indication: PYREXIA
     Dosage: 1 IU/KG IU/KILOGRAM,  3 IN
     Route: 042
     Dates: start: 20150301, end: 20150301
  23. DUROGESIC [Concomitant]
     Active Substance: FENTANYL
     Indication: PAIN MANAGEMENT
     Dosage: 12 ?G MICROGRAM(S), IN 1 HOUR, 1 IN
     Route: 065
     Dates: start: 20150301, end: 20150301
  24. GRASIN [Concomitant]
     Indication: NEUTROPENIA
     Dosage: 300 ?G MICROGRAM(S), IN 1 HOUR, 1 IN
     Route: 042
     Dates: start: 20150216, end: 20150216
  25. NORVASC [Concomitant]
     Active Substance: AMLODIPINE BESYLATE
     Indication: HYPERTENSION
     Dosage: 5 MG MILLIGRAM(S), 1 IN
     Route: 048
     Dates: start: 20150302, end: 20150302
  26. TACENOL [Concomitant]
     Indication: PAIN MANAGEMENT
     Dosage: 650 MG MILLIGRAM(S), 2 IN
     Route: 048
     Dates: start: 20150305, end: 20150305
  27. PARACETAMOL W/TRAMADOL [Concomitant]
     Indication: PAIN MANAGEMENT
     Dosage: 1 DOSE(S), 1 IN
     Route: 048
     Dates: start: 20150304, end: 20150304
  28. DACOGEN [Suspect]
     Active Substance: DECITABINE
     Dosage: 20 MG/M2, 1 IN
     Route: 042
     Dates: start: 20150202, end: 20150206
  29. GASTER [Concomitant]
     Active Substance: FAMOTIDINE
     Indication: PROPHYLAXIS AGAINST GASTROINTESTINAL ULCER
     Dosage: 20 MG MILLIGRAM(S), 1 IN
     Route: 042
     Dates: start: 20150301, end: 20150301
  30. NUTRIFLEX PERI [Concomitant]
     Active Substance: VITAMINS
     Indication: NUTRITIONAL SUPPLEMENTATION
     Dosage: 1250 ML, UNK
     Route: 042
     Dates: start: 20150301, end: 20150303
  31. ADALAT [Concomitant]
     Active Substance: NIFEDIPINE
     Indication: HYPERTENSION
     Dosage: 30 MG MILLIGRAM(S), 1 IN
     Route: 048
     Dates: start: 20150302, end: 20150302
  32. ATROVENT [Concomitant]
     Active Substance: IPRATROPIUM BROMIDE
     Indication: ASTHMA
     Dosage: 2 ML MILLILITRE(S), 4 IN
     Route: 065
     Dates: start: 20150313, end: 20150319
  33. LASIX [Concomitant]
     Active Substance: FUROSEMIDE
     Dosage: 15 MG MILLIGRAM(S), 1
     Route: 042
     Dates: start: 20150314, end: 20150314
  34. LASIX [Concomitant]
     Active Substance: FUROSEMIDE
     Indication: DIURETIC THERAPY
     Dosage: 10 MG MILLIGRAM(S), 1 IN
     Route: 042
     Dates: start: 20150312, end: 20150312
  35. DACOGEN [Suspect]
     Active Substance: DECITABINE
     Indication: MYELODYSPLASTIC SYNDROME
     Dosage: 20 MG/M2, 1 IN
     Route: 042
     Dates: start: 20150105, end: 20150105
  36. LANSTON [Concomitant]
     Active Substance: LANSOPRAZOLE
     Indication: PROPHYLAXIS AGAINST GASTROINTESTINAL ULCER
     Dosage: 15 MG MILLIGRAM(S), 1 IN
     Route: 048
     Dates: start: 20150216, end: 20150224
  37. LANSTON [Concomitant]
     Active Substance: LANSOPRAZOLE
     Dosage: 15 MG MILLIGRAM(S), 1 IN
     Route: 048
     Dates: start: 20150309, end: 20150320
  38. PHENIRAMINE MALEATE [Concomitant]
     Active Substance: PHENIRAMINE MALEATE
     Indication: PREMEDICATION
     Dosage: 4 MG MILLIGRAM(S), 2 IN
     Route: 042
     Dates: start: 20150216, end: 20150216
  39. PHENIRAMINE MALEATE [Concomitant]
     Active Substance: PHENIRAMINE MALEATE
     Dosage: 4 MG MILLIGRAM(S), 2 IN
     Route: 042
     Dates: start: 20150301, end: 20150301
  40. GRASIN [Concomitant]
     Dosage: 300 ?G MICROGRAM(S), IN 1 HOUR, 1 IN
     Route: 042
     Dates: start: 20150301, end: 20150301
  41. ALBUMIN [Concomitant]
     Active Substance: ALBUMIN (HUMAN)
     Indication: DIURETIC THERAPY
     Dosage: 100 ML MILLILITRE(S), 1 IN
     Route: 042
     Dates: start: 20150316, end: 20150316
  42. ERDOSTIN [Concomitant]
     Dosage: 300 MG MILLIGRAM(S), 3 IN
     Route: 048
     Dates: start: 20150308, end: 20150314
  43. SEROQUEL [Concomitant]
     Active Substance: QUETIAPINE FUMARATE
     Indication: SLEEP DISORDER
     Dosage: 12.5 MG MILLIGRAM(S), 1 IN
     Route: 048
     Dates: start: 20150302, end: 20150319
  44. VENTOLIN [Concomitant]
     Active Substance: ALBUTEROL SULFATE
     Indication: ASTHMA
     Dosage: 1 DOSE(S), 1 IN
     Route: 065
     Dates: start: 20150307, end: 20150307
  45. TRIDOL [Concomitant]
     Dosage: 50 MG MILLIGRAM(S), 1 IN
     Route: 042
     Dates: start: 20150318, end: 20150318
  46. MAXIPIME [Concomitant]
     Active Substance: CEFEPIME HYDROCHLORIDE
     Indication: FEBRILE NEUTROPENIA
     Dosage: 2 G GRAM(S),1 IN
     Route: 042
     Dates: start: 20150228, end: 20150228
  47. NOXAFIL [Concomitant]
     Active Substance: POSACONAZOLE
     Indication: ANTIFUNGAL PROPHYLAXIS
     Dosage: 5 ML, UNK
     Route: 048
     Dates: start: 20150105
  48. GRASIN [Concomitant]
     Dosage: 300 ?G MICROGRAM(S)/HR, 1 IN
     Route: 042
     Dates: start: 20150305, end: 20150305
  49. DOXOFYLLINE [Concomitant]
     Active Substance: DOXOFYLLINE
     Indication: ASTHMA
     Dosage: 400 MG MILLIGRAM(S), 1 IN
     Route: 048
     Dates: start: 20150313, end: 20150319
  50. ERDOSTIN [Concomitant]
     Indication: PRODUCTIVE COUGH
     Dosage: 300 MG MILLIGRAM(S), 1 IN
     Route: 048
     Dates: start: 20150306, end: 20150306
  51. DIFLUCAN [Concomitant]
     Active Substance: FLUCONAZOLE
     Dosage: 50 MG MILLIGRAM(S), 1 IN
     Route: 048
     Dates: start: 20150302, end: 20150315

REACTIONS (2)
  - Influenza like illness [Not Recovered/Not Resolved]
  - Pneumonia [Recovered/Resolved]

NARRATIVE: CASE EVENT DATE: 20150105
